FAERS Safety Report 11736914 (Version 1)
Quarter: 2015Q4

REPORT INFORMATION
  Report Type: Spontaneous
  Country: US (occurrence: None)
  Receive Date: 20151112
  Receipt Date: 20151112
  Transmission Date: 20160304
  Serious: Yes (Disabling)
  Sender: FDA-Public Use
  Company Number: None

PATIENT
  Age: 60 Year
  Sex: Male
  Weight: 80.29 kg

DRUGS (5)
  1. RISPERDAL CONSTA [Suspect]
     Active Substance: RISPERIDONE
     Indication: NEUROSYPHILIS
     Route: 030
     Dates: start: 20151021
  2. INFA ZYME FORTE [Concomitant]
  3. GINGER. [Concomitant]
     Active Substance: GINGER
  4. GARLIC. [Concomitant]
     Active Substance: GARLIC
  5. VEGANZYME [Concomitant]

REACTIONS (6)
  - Headache [None]
  - Toxicologic test abnormal [None]
  - Vagus nerve disorder [None]
  - Gastric disorder [None]
  - Product contamination microbial [None]
  - Abdominal pain upper [None]

NARRATIVE: CASE EVENT DATE: 20151021
